FAERS Safety Report 5155618-8 (Version None)
Quarter: 2006Q4

REPORT INFORMATION
  Report Type: 
  Country: None (occurrence: None)
  Receive Date: 20061114
  Receipt Date: 20061031
  Transmission Date: 20070319
  Serious: Yes (Other)
  Sender: FDA-Public Use
  Company Number: 2006130365

PATIENT
  Age: 37 Year
  Sex: Female
  Weight: 43.0917 kg

DRUGS (2)
  1. LYRICA [Suspect]
     Indication: PAIN MANAGEMENT
     Dosage: 300 MG (1 IN 1 D)
     Dates: start: 20060501, end: 20060601
  2. DRUG, UNSPECIFIED (DRUG, UNSPECIFIED) [Concomitant]

REACTIONS (2)
  - ALOPECIA [None]
  - SERUM SICKNESS [None]
